FAERS Safety Report 23668629 (Version 1)
Quarter: 2024Q1

REPORT INFORMATION
  Report Type: Spontaneous
  Country: US (occurrence: US)
  Receive Date: 20240325
  Receipt Date: 20240325
  Transmission Date: 20240410
  Serious: No
  Sender: FDA-Public Use
  Company Number: US-PFIZER INC-PV202400038702

PATIENT
  Age: 54 Year
  Sex: Female

DRUGS (3)
  1. NURTEC ODT [Suspect]
     Active Substance: RIMEGEPANT SULFATE
     Indication: Headache
     Dosage: 1 DF (TAKING ONE BEFORE)
  2. NURTEC ODT [Suspect]
     Active Substance: RIMEGEPANT SULFATE
     Dosage: 2 DF (TAKES 2 TABLETS UNDER HER TONGUE)
     Route: 060
  3. NURTEC ODT [Suspect]
     Active Substance: RIMEGEPANT SULFATE
     Dosage: 2 DF, AS NEEDED (IF SHE DOESN^T TAKE IT EARLY ENOUGH, THEN SHE^LL HAVE TO TAKE 2 MORE THE NEXT DAY)

REACTIONS (3)
  - Intentional overdose [Unknown]
  - Off label use [Unknown]
  - Drug ineffective for unapproved indication [Unknown]
